FAERS Safety Report 21245875 (Version 2)
Quarter: 2022Q3

REPORT INFORMATION
  Report Type: Spontaneous
  Country: US (occurrence: US)
  Receive Date: 20220824
  Receipt Date: 20220909
  Transmission Date: 20221027
  Serious: Yes (Other)
  Sender: FDA-Public Use
  Company Number: US-ADVANZ PHARMA-202208005137

PATIENT

DRUGS (10)
  1. HYDROXYCHLOROQUINE [Suspect]
     Active Substance: HYDROXYCHLOROQUINE
     Indication: COVID-19 pneumonia
     Dosage: 4 DOSAGE FORM
     Route: 065
  2. HYDROXYCHLOROQUINE [Suspect]
     Active Substance: HYDROXYCHLOROQUINE
     Indication: Product use in unapproved indication
  3. LITHIUM [Concomitant]
     Active Substance: LITHIUM
     Dosage: 450 MG, IN THE MORNING
  4. LITHIUM [Concomitant]
     Active Substance: LITHIUM
     Dosage: 750 MG, AT NIGHT
     Route: 048
  5. LITHIUM [Concomitant]
     Active Substance: LITHIUM
     Dosage: 300 MG, BID (ON HD 7)
  6. LITHIUM [Concomitant]
     Active Substance: LITHIUM
     Dosage: 450 MG, QD IN THE NIGHT
  7. CLOZAPINE [Concomitant]
     Active Substance: CLOZAPINE
     Dosage: 100 MG IN THE MORNING
  8. CLOZAPINE [Concomitant]
     Active Substance: CLOZAPINE
     Dosage: 200 MG AT NIGHT
  9. LISDEXAMFETAMINE [Concomitant]
     Active Substance: LISDEXAMFETAMINE
     Dosage: 40 MG, QD
  10. CHLORPROMAZINE [Concomitant]
     Active Substance: CHLORPROMAZINE
     Indication: Agitation
     Dosage: 50 MG, QD AS NEEDED

REACTIONS (2)
  - Electrocardiogram QT prolonged [Unknown]
  - Off label use [Unknown]
